FAERS Safety Report 20489707 (Version 1)
Quarter: 2022Q1

REPORT INFORMATION
  Report Type: Spontaneous
  Country: US (occurrence: None)
  Receive Date: 20220217
  Receipt Date: 20220217
  Transmission Date: 20220423
  Serious: Yes (Life-Threatening, Hospitalization)
  Sender: FDA-Public Use
  Company Number: None

PATIENT
  Age: 20 Year
  Sex: Female
  Weight: 81 kg

DRUGS (2)
  1. HYDROCORTISONE [Suspect]
     Active Substance: HYDROCORTISONE
     Indication: Addison^s disease
     Dosage: OTHER QUANTITY : 1 TABLET(S);?FREQUENCY : EVERY 8 HOURS;?
     Route: 048
  2. Eliquis 5 mg BID [Concomitant]

REACTIONS (8)
  - Product substitution issue [None]
  - Fatigue [None]
  - Decreased appetite [None]
  - Weight decreased [None]
  - Nausea [None]
  - Infection susceptibility increased [None]
  - Adrenocortical insufficiency acute [None]
  - Drug ineffective [None]

NARRATIVE: CASE EVENT DATE: 20211125
